FAERS Safety Report 13338449 (Version 2)
Quarter: 2017Q2

REPORT INFORMATION
  Report Type: Spontaneous
  Country: US (occurrence: US)
  Receive Date: 20170315
  Receipt Date: 20170405
  Transmission Date: 20170830
  Serious: Yes (Hospitalization)
  Sender: FDA-Public Use
  Company Number: US-HORIZON-RAV-0062-2017

PATIENT
  Age: 4 Month
  Sex: Female
  Weight: 5.24 kg

DRUGS (3)
  1. L-ARGININE [Concomitant]
     Active Substance: ARGININE
     Indication: HYPERAMMONAEMIA
     Dosage: 768 MG Q6H
     Route: 048
     Dates: start: 201610
  2. SODIUM BENZOATE [Concomitant]
     Active Substance: SODIUM BENZOATE
     Indication: HYPERAMMONAEMIA
     Dosage: 325 MG Q6H
     Route: 048
     Dates: start: 201610
  3. RAVICTI [Suspect]
     Active Substance: GLYCEROL PHENYLBUTYRATE
     Indication: HYPERAMMONAEMIA
     Dosage: 0.75 ML Q6H, INCREASED TO 1.5 ML DAILY
     Route: 048
     Dates: start: 201610

REACTIONS (5)
  - Hyperammonaemia [Recovered/Resolved]
  - Staphylococcal infection [Recovered/Resolved]
  - Off label use [Unknown]
  - Vomiting [Recovered/Resolved]
  - Seizure [Recovered/Resolved]

NARRATIVE: CASE EVENT DATE: 20161108
